FAERS Safety Report 15867533 (Version 2)
Quarter: 2019Q2

REPORT INFORMATION
  Report Type: Spontaneous
  Country: US (occurrence: US)
  Receive Date: 20190125
  Receipt Date: 20190509
  Transmission Date: 20190711
  Serious: Yes (Other)
  Sender: FDA-Public Use
  Company Number: US-PFIZER INC-2019033543

PATIENT
  Age: 69 Year
  Sex: Female
  Weight: 72.52 kg

DRUGS (3)
  1. FASLODEX [Suspect]
     Active Substance: FULVESTRANT
     Indication: BREAST CANCER METASTATIC
     Dosage: UNK (TWO AT THE SAME TIME, EVERY 28 DAYS)
  2. IBRANCE [Suspect]
     Active Substance: PALBOCICLIB
     Indication: BREAST CANCER METASTATIC
     Dosage: 125 MG, UNK
  3. IBRANCE [Suspect]
     Active Substance: PALBOCICLIB
     Dosage: 125 MG, UNK (125 MG, ONCE, ORALLY)
     Route: 048

REACTIONS (3)
  - Feeling abnormal [Unknown]
  - Thrombosis [Unknown]
  - Fatigue [Not Recovered/Not Resolved]
